FAERS Safety Report 6386061-1 (Version None)
Quarter: 2009Q4

REPORT INFORMATION
  Report Type: 
  Country: None (occurrence: None)
  Receive Date: 20091002
  Receipt Date: 20081105
  Transmission Date: 20100525
  Serious: No
  Sender: FDA-Public Use
  Company Number: US-ASTRAZENECA-2008UW24701

PATIENT

DRUGS (2)
  1. ARIMIDEX [Suspect]
     Dosage: UNKNOWN
     Route: 048
     Dates: start: 20081001
  2. EFFEXOR [Concomitant]

REACTIONS (2)
  - ALOPECIA [None]
  - NAIL DISORDER [None]
